FAERS Safety Report 4522642-5 (Version None)
Quarter: 2004Q4

REPORT INFORMATION
  Report Type: 
  Country: None (occurrence: None)
  Receive Date: 20041207
  Receipt Date: 20041129
  Transmission Date: 20050328
  Serious: No
  Sender: FDA-Public Use
  Company Number: 2004SE06625

PATIENT
  Age: 64 Year
  Sex: Male

DRUGS (2)
  1. AMIAS [Suspect]
  2. ZOCOR [Suspect]
     Dates: end: 20040701

REACTIONS (1)
  - NEUROPATHY PERIPHERAL [None]
